FAERS Safety Report 7554088-X (Version None)
Quarter: 2011Q2

REPORT INFORMATION
  Report Type: 
  Country: None (occurrence: None)
  Receive Date: 20110610
  Receipt Date: 20110531
  Transmission Date: 20111010
  Serious: Yes (Other)
  Sender: FDA-Public Use
  Company Number: WAES 0905USA00551

PATIENT
  Age: 66 Year
  Sex: Male
  Weight: 89.8122 kg

DRUGS (14)
  1. HYGROTON [Concomitant]
  2. TOPROL-XL [Concomitant]
  3. PLACEBO [Suspect]
     Indication: ACUTE CORONARY SYNDROME
     Dosage: PO
     Route: 048
     Dates: start: 20060531
  4. DARVOCET-N 50 [Concomitant]
  5. CARDURA [Concomitant]
  6. PLETAL [Concomitant]
  7. RANEXA [Concomitant]
  8. NAPROXEN [Concomitant]
  9. PLACEBO [Suspect]
     Indication: ACUTE CORONARY SYNDROME
     Dosage: PO
     Route: 048
     Dates: start: 20060531
  10. TESSALON [Concomitant]
  11. XANAX [Concomitant]
  12. VYTORIN [Suspect]
     Indication: ACUTE CORONARY SYNDROME
     Dosage: 10-40 MG/DAILY/PO
     Route: 048
     Dates: start: 20060531
  13. VICODIN [Concomitant]
  14. ALBUTEROL SULFATE AUTOHALER [Concomitant]

REACTIONS (2)
  - BLADDER PAPILLOMA [None]
  - HAEMATURIA [None]
